FAERS Safety Report 6420430-6 (Version None)
Quarter: 2009Q4

REPORT INFORMATION
  Report Type: 
  Country: None (occurrence: None)
  Receive Date: 20091021
  Receipt Date: 20090810
  Transmission Date: 20100525
  Serious: No
  Sender: FDA-Public Use
  Company Number: ALL1-2009-02255

PATIENT

DRUGS (2)
  1. VYVANSE [Suspect]
     Indication: DRUG USE FOR UNKNOWN INDICATION
     Dosage: 70 MG, ORAL; MG, ORAL
     Route: 048
     Dates: start: 20090101, end: 20090101
  2. VYVANSE [Suspect]
     Indication: DRUG USE FOR UNKNOWN INDICATION
     Dosage: 70 MG, ORAL; MG, ORAL
     Route: 048
     Dates: start: 20090101

REACTIONS (3)
  - ADVERSE EVENT [None]
  - DRUG INEFFECTIVE [None]
  - OVERDOSE [None]
